FAERS Safety Report 13256015 (Version 1)
Quarter: 2017Q1

REPORT INFORMATION
  Report Type: Spontaneous
  Country: FR (occurrence: FR)
  Receive Date: 20170221
  Receipt Date: 20170221
  Transmission Date: 20170428
  Serious: Yes (Hospitalization)
  Sender: FDA-Public Use
  Company Number: FR-PFIZER INC-19627

PATIENT
  Age: 58 Year
  Sex: Female

DRUGS (5)
  1. TOMUDEX [Suspect]
     Active Substance: RALTITREXED
     Dosage: 3.3 MG, SINGLE (ONCE OVER 15 MIN)
     Route: 042
     Dates: start: 20080118, end: 20080118
  2. POLARAMINE [Concomitant]
     Active Substance: DEXCHLORPHENIRAMINE MALEATE
     Indication: PREMEDICATION
     Dosage: 10 MG, UNK
     Route: 065
     Dates: start: 20080118, end: 20080118
  3. SOLU-MEDROL [Concomitant]
     Active Substance: METHYLPREDNISOLONE SODIUM SUCCINATE
     Indication: PREMEDICATION
     Dosage: 80 MG, UNK
     Route: 065
     Dates: start: 20080118, end: 20080118
  4. OXALIPLATIN MAYNE [Suspect]
     Active Substance: OXALIPLATIN
     Indication: COLON CANCER
     Dosage: 170 MG, SINGLE (ONCE)
     Route: 042
     Dates: start: 20080118, end: 20080118
  5. ZOPHREN [Concomitant]
     Active Substance: ONDANSETRON
     Indication: PREMEDICATION
     Dosage: 8 MG, UNK
     Route: 065
     Dates: start: 20080118, end: 20080118

REACTIONS (4)
  - Malaise [Recovered/Resolved]
  - Chest pain [Recovered/Resolved]
  - Abdominal pain [Recovered/Resolved]
  - Headache [Recovered/Resolved]

NARRATIVE: CASE EVENT DATE: 20080118
